FAERS Safety Report 6708654-1 (Version None)
Quarter: 2010Q2

REPORT INFORMATION
  Report Type: 
  Country: None (occurrence: None)
  Receive Date: 20100503
  Receipt Date: 20100429
  Transmission Date: 20101027
  Serious: Yes (Life-Threatening)
  Sender: FDA-Public Use
  Company Number: CA-ROCHE-700607

PATIENT
  Sex: Female
  Weight: 74 kg

DRUGS (2)
  1. TRASTUZUMAB [Suspect]
     Indication: BREAST CANCER
     Route: 065
     Dates: start: 20100415
  2. BEVACIZUMAB [Suspect]
     Indication: BREAST CANCER
     Dosage: PERMANENTLY DISCONTINUED, LAST DOSE PRIOR TO SAE 05 APRIL 2010, DOSE FORM: VIAL
     Route: 042
     Dates: start: 20100405, end: 20100427

REACTIONS (1)
  - TRANSIENT ISCHAEMIC ATTACK [None]
